FAERS Safety Report 10100847 (Version 1)
Quarter: 2014Q2

REPORT INFORMATION
  Report Type: Spontaneous
  Country: FR (occurrence: FR)
  Receive Date: 20140423
  Receipt Date: 20140423
  Transmission Date: 20141212
  Serious: Yes (Hospitalization)
  Sender: FDA-Public Use
  Company Number: FR-DSJP-DSE-2014-105587

PATIENT
  Sex: 0

DRUGS (1)
  1. ALTEIS 20 MG [Suspect]
     Indication: HYPERTENSION
     Dosage: 20 MG, QD
     Route: 048
     Dates: end: 20140206

REACTIONS (3)
  - Intestinal villi atrophy [Unknown]
  - Weight decreased [Unknown]
  - Diarrhoea [Recovered/Resolved]
